FAERS Safety Report 8842856 (Version 2)
Quarter: 2012Q4

REPORT INFORMATION
  Report Type: 
  Country: US (occurrence: US)
  Receive Date: 20121016
  Receipt Date: 20121026
  Transmission Date: 20130627
  Serious: Yes (Death, Hospitalization)
  Sender: FDA-Public Use
  Company Number: US-ACTELION-A-NJ2011-53391

PATIENT
  Age: 38 Year
  Sex: Female

DRUGS (32)
  1. VELETRI [Suspect]
     Indication: PULMONARY ARTERIAL HYPERTENSION
     Dosage: 16 ng/kg, per min
     Route: 041
     Dates: start: 201107, end: 20121003
  2. LETAIRIS [Concomitant]
  3. REVATIO [Concomitant]
  4. PLAVIX [Concomitant]
  5. ASPIRIN [Concomitant]
  6. OXYGEN [Concomitant]
  7. COUMADIN [Concomitant]
  8. FLOLAN [Concomitant]
  9. NIFEDIPINE [Concomitant]
  10. PROTONIX [Concomitant]
  11. ASCORBIC ACID [Concomitant]
  12. REMERON [Concomitant]
  13. MULTIVITAMIN [Concomitant]
  14. COLACE [Concomitant]
  15. SENNA [Concomitant]
  16. ZOFRAN [Concomitant]
  17. LISINOPRIL [Concomitant]
  18. PERCOCET [Concomitant]
  19. LOPRESSOR [Concomitant]
  20. ZEMPLAR [Concomitant]
  21. PRAVASTATIN [Concomitant]
  22. VITAMIN B [Concomitant]
  23. FOLIC ACID [Concomitant]
  24. FAMOTIDINE [Concomitant]
  25. SEVELAMER [Concomitant]
  26. SIMVASTATIN [Concomitant]
  27. LASIX [Concomitant]
  28. TOPROL [Concomitant]
  29. AMBIEN [Concomitant]
  30. CALCITRAL [Concomitant]
  31. CALCITRIOL [Concomitant]
  32. MORPHINE [Concomitant]

REACTIONS (17)
  - Septic shock [Fatal]
  - Chest pain [Recovering/Resolving]
  - Hypertensive crisis [Recovered/Resolved]
  - Clostridium difficile colitis [Recovered/Resolved]
  - Diarrhoea [Recovered/Resolved]
  - Viral infection [Recovered/Resolved]
  - Vomiting [Recovered/Resolved]
  - Abdominal pain [Recovered/Resolved]
  - Condition aggravated [Recovered/Resolved]
  - Nausea [Recovered/Resolved]
  - Dyspnoea [Unknown]
  - Pulmonary hypertension [Recovering/Resolving]
  - Pain in jaw [Not Recovered/Not Resolved]
  - Myalgia [Not Recovered/Not Resolved]
  - Musculoskeletal pain [Unknown]
  - Tachycardia [Unknown]
  - Oedema peripheral [Unknown]
